FAERS Safety Report 7307632-1 (Version None)
Quarter: 2011Q1

REPORT INFORMATION
  Report Type: 
  Country: None (occurrence: None)
  Receive Date: 20110223
  Receipt Date: 20110215
  Transmission Date: 20110831
  Serious: Yes (Other)
  Sender: FDA-Public Use
  Company Number: FR-BAXTER-2011BH004015

PATIENT
  Age: 10 Month

DRUGS (5)
  1. IFOSFAMIDE [Suspect]
     Indication: RHABDOMYOSARCOMA
     Route: 042
  2. VINCRISTINE SULFATE [Suspect]
     Indication: RHABDOMYOSARCOMA
     Route: 042
  3. DACTINOMYCIN [Suspect]
     Indication: RHABDOMYOSARCOMA
     Route: 065
  4. MESNA [Suspect]
     Indication: RHABDOMYOSARCOMA
     Route: 042
  5. GLUCOSE-SALINE SOLUTION [Suspect]
     Indication: PROPHYLAXIS AGAINST DEHYDRATION
     Route: 065

REACTIONS (1)
  - FANCONI SYNDROME [None]
